FAERS Safety Report 4871717-X (Version None)
Quarter: 2005Q4

REPORT INFORMATION
  Report Type: 
  Country: None (occurrence: None)
  Receive Date: 20051230
  Receipt Date: 20051226
  Transmission Date: 20060501
  Serious: Yes (Death)
  Sender: FDA-Public Use
  Company Number: HQWYE156327DEC05

PATIENT
  Age: 31 Year
  Sex: Male

DRUGS (1)
  1. MYLOTARG [Suspect]
     Indication: ACUTE MYELOID LEUKAEMIA
     Dosage: A SINGLE 15 MG DOSE
     Route: 041
     Dates: start: 20051130, end: 20051130

REACTIONS (2)
  - CARDIAC FAILURE [None]
  - SEPSIS [None]
